FAERS Safety Report 10187420 (Version 2)
Quarter: 2014Q2

REPORT INFORMATION
  Report Type: Spontaneous
  Country: US (occurrence: US)
  Receive Date: 20140522
  Receipt Date: 20140602
  Transmission Date: 20141212
  Serious: No
  Sender: FDA-Public Use
  Company Number: US-TEVA-483546USA

PATIENT
  Age: 23 Year
  Sex: Female
  Weight: 80.81 kg

DRUGS (1)
  1. PLAN B ONE-STEP [Suspect]
     Indication: POST COITAL CONTRACEPTION
     Dosage: 1.5 MILLIGRAM DAILY;
     Route: 048
     Dates: start: 20140329, end: 20140329

REACTIONS (3)
  - Back pain [Recovered/Resolved]
  - Menstruation irregular [Recovered/Resolved]
  - Breast pain [Recovered/Resolved]
